FAERS Safety Report 6782374-X (Version None)
Quarter: 2010Q2

REPORT INFORMATION
  Report Type: 
  Country: None (occurrence: None)
  Receive Date: 20100621
  Receipt Date: 20100609
  Transmission Date: 20101027
  Serious: Yes (Life-Threatening, Hospitalization)
  Sender: FDA-Public Use
  Company Number: FR-PFIZER INC-2010071901

PATIENT
  Age: 47 Year
  Sex: Female

DRUGS (16)
  1. NEURONTIN [Suspect]
     Dosage: 900 MG, PER DAY
     Route: 048
     Dates: start: 20100428, end: 20100429
  2. SUFENTA PRESERVATIVE FREE [Suspect]
     Dosage: UNK
     Route: 042
     Dates: start: 20100429, end: 20100501
  3. PROPOFOL [Suspect]
     Dosage: UNK
     Route: 042
     Dates: start: 20100429, end: 20100429
  4. ATRACURIUM [Suspect]
     Dosage: UNK
     Route: 042
     Dates: start: 20100429, end: 20100429
  5. AUGMENTIN '125' [Suspect]
     Dosage: 3 G, UNK
     Route: 042
     Dates: start: 20100429, end: 20100429
  6. KETAMINE HCL [Suspect]
     Dosage: UNK
     Route: 042
     Dates: start: 20100429, end: 20100429
  7. SUPRANE [Suspect]
     Dosage: UNK
     Route: 055
     Dates: start: 20100429, end: 20100501
  8. ROPIVACAINE (NAROPEINE) [Suspect]
     Dosage: 15 MG, UNK
     Dates: start: 20100429, end: 20100429
  9. POVIDONE-IODINE [Suspect]
     Dosage: UNK
     Route: 067
     Dates: start: 20100429, end: 20100429
  10. POVIDONE-IODINE [Suspect]
     Dosage: UNK
     Route: 003
     Dates: start: 20100428, end: 20100501
  11. NORMACOL [Suspect]
     Dosage: UNK
     Route: 054
     Dates: start: 20100428, end: 20100428
  12. LOVENOX [Suspect]
     Dosage: 0.4 ML, PER DAY
     Route: 058
     Dates: start: 20100428, end: 20100429
  13. PARACETAMOL [Suspect]
     Dosage: UNK
     Route: 042
     Dates: start: 20100429, end: 20100501
  14. ACUPAN [Suspect]
     Dosage: UNK
     Route: 042
     Dates: start: 20100429, end: 20100430
  15. MORPHINE [Suspect]
     Dosage: UNK
     Route: 042
     Dates: start: 20100429, end: 20100429
  16. EPHEDRINE AGUETTANT [Suspect]
     Dosage: UNK
     Route: 042
     Dates: start: 20100429, end: 20100429

REACTIONS (4)
  - ACUTE PULMONARY OEDEMA [None]
  - HAEMATURIA [None]
  - OLIGURIA [None]
  - RENAL FAILURE ACUTE [None]
